FAERS Safety Report 9702678 (Version 2)
Quarter: 2013Q4

REPORT INFORMATION
  Report Type: Spontaneous
  Country: US (occurrence: US)
  Receive Date: 20131121
  Receipt Date: 20131204
  Transmission Date: 20140711
  Serious: Yes (Hospitalization, Other)
  Sender: FDA-Public Use
  Company Number: US-BAXTER-2013BAX045513

PATIENT
  Sex: Male

DRUGS (2)
  1. DIANEAL LOW CALCIUM [Suspect]
     Indication: RENAL FAILURE CHRONIC
     Route: 033
     Dates: start: 201102, end: 20131018
  2. EXTRANEAL [Suspect]
     Indication: RENAL FAILURE CHRONIC
     Route: 033
     Dates: start: 201102, end: 20131018

REACTIONS (6)
  - Cardiac disorder [Unknown]
  - Cardiac arrest [Recovered/Resolved]
  - Coma [Recovered/Resolved]
  - Escherichia sepsis [Recovered/Resolved]
  - Dyspnoea [Not Recovered/Not Resolved]
  - Abasia [Recovering/Resolving]
